FAERS Safety Report 5859478-9 (Version None)
Quarter: 2008Q3

REPORT INFORMATION
  Report Type: 
  Country: None (occurrence: None)
  Receive Date: 20080827
  Receipt Date: 20080821
  Transmission Date: 20090109
  Serious: Yes (Death)
  Sender: FDA-Public Use
  Company Number: A0702491A

PATIENT
  Age: 53 Year
  Sex: Female
  Weight: 170.5 kg

DRUGS (5)
  1. AVANDIA [Suspect]
     Dosage: 8MG PER DAY
     Route: 048
     Dates: start: 20000322
  2. HUMULIN R [Concomitant]
  3. AMARYL [Concomitant]
  4. VIOXX [Concomitant]
  5. LEXAPRO [Concomitant]

REACTIONS (4)
  - DEATH [None]
  - GASTRIC DISORDER [None]
  - INJURY [None]
  - LIVER DISORDER [None]
